FAERS Safety Report 5106792-0 (Version None)
Quarter: 2006Q3

REPORT INFORMATION
  Report Type: 
  Country: None (occurrence: None)
  Receive Date: 20060731
  Receipt Date: 20050927
  Transmission Date: 20061208
  Serious: Yes (Hospitalization)
  Sender: FDA-Public Use
  Company Number: US-JNJFOC-20050906846

PATIENT
  Age: 78 Year
  Sex: Female

DRUGS (2)
  1. RISPERDAL [Suspect]
     Indication: DRUG USE FOR UNKNOWN INDICATION
     Dosage: 3 MG, ORAL
     Route: 048
     Dates: start: 20050920
  2. REQUIP (ROPINIROLE HYDROCHLORIDE) TABLETS [Concomitant]

REACTIONS (2)
  - INCOHERENT [None]
  - LETHARGY [None]
